FAERS Safety Report 8616612 (Version 3)
Quarter: 2012Q4

REPORT INFORMATION
  Report Type: 
  Country: BR (occurrence: BR)
  Receive Date: 20120615
  Receipt Date: 20121122
  Transmission Date: 20130627
  Serious: Yes (Hospitalization, Other)
  Sender: FDA-Public Use
  Company Number: BR-US-EMD SERONO, INC.-7139015

PATIENT
  Age: 45 Year
  Sex: Male

DRUGS (2)
  1. REBIF [Suspect]
     Indication: RELAPSING-REMITTING MULTIPLE SCLEROSIS
     Dates: start: 20011203
  2. REBIF [Suspect]
     Dates: start: 201201, end: 201209

REACTIONS (7)
  - Acute myocardial infarction [Unknown]
  - Diabetes mellitus [Unknown]
  - Hypertension [Unknown]
  - Malaise [Unknown]
  - Muscular weakness [Unknown]
  - Pain [Unknown]
  - Pyrexia [Unknown]
